FAERS Safety Report 25883045 (Version 1)
Quarter: 2025Q4

REPORT INFORMATION
  Report Type: Spontaneous
  Country: JP (occurrence: JP)
  Receive Date: 20251006
  Receipt Date: 20251006
  Transmission Date: 20260118
  Serious: Yes (Hospitalization)
  Sender: AMGEN
  Company Number: JP-DSJP-DS-2025-167070-

PATIENT
  Age: 75 Year
  Sex: Female

DRUGS (1)
  1. DENOSUMAB [Suspect]
     Active Substance: DENOSUMAB
     Indication: Osteoporosis
     Dosage: 60 MG, 3 TIMES
     Route: 065

REACTIONS (3)
  - Muscle spasms [Recovering/Resolving]
  - Gingival swelling [Recovering/Resolving]
  - Oral neoplasm [Recovering/Resolving]
